FAERS Safety Report 16500423 (Version 1)
Quarter: 2019Q3

REPORT INFORMATION
  Report Type: Spontaneous
  Country: US (occurrence: US)
  Receive Date: 20190628
  Receipt Date: 20190628
  Transmission Date: 20191004
  Serious: Yes (Other)
  Sender: FDA-Public Use
  Company Number: None

PATIENT
  Age: 61 Year
  Sex: Male
  Weight: 83.25 kg

DRUGS (8)
  1. SYNTHROID [Concomitant]
     Active Substance: LEVOTHYROXINE SODIUM
  2. FINASTERIDE. [Concomitant]
     Active Substance: FINASTERIDE
  3. MULTIVITAMIN [Concomitant]
     Active Substance: VITAMINS
  4. MELATONIN [Concomitant]
     Active Substance: MELATONIN
  5. CLOMIPHENE [Concomitant]
     Active Substance: CLOMIPHENE
  6. XIAFLEX [Suspect]
     Active Substance: COLLAGENASE CLOSTRIDIUM HISTOLYTICUM
     Indication: PEYRONIE^S DISEASE
     Dosage: ?          OTHER ROUTE:INJECTION?
  7. OMEPRAZOLE. [Concomitant]
     Active Substance: OMEPRAZOLE
  8. ALEVE [Concomitant]
     Active Substance: NAPROXEN SODIUM

REACTIONS (3)
  - Pelvic pain [None]
  - Flushing [None]
  - Feeling hot [None]

NARRATIVE: CASE EVENT DATE: 20190617
